FAERS Safety Report 5915858-4 (Version None)
Quarter: 2008Q4

REPORT INFORMATION
  Report Type: 
  Country: None (occurrence: None)
  Receive Date: 20081010
  Receipt Date: 20080930
  Transmission Date: 20090506
  Serious: Yes (Other)
  Sender: FDA-Public Use
  Company Number: CA-PFIZER INC-2008083020

PATIENT
  Age: 35 Year
  Sex: Male

DRUGS (1)
  1. ZOLOFT [Suspect]
     Route: 048
     Dates: start: 20060101, end: 20080101

REACTIONS (2)
  - DISTURBANCE IN ATTENTION [None]
  - MEMORY IMPAIRMENT [None]
